FAERS Safety Report 17895688 (Version 2)
Quarter: 2020Q2

REPORT INFORMATION
  Report Type: Report from Study
  Country: NL (occurrence: NL)
  Receive Date: 20200615
  Receipt Date: 20200629
  Transmission Date: 20200714
  Serious: No
  Sender: FDA-Public Use
  Company Number: NL-EMD SERONO-9167837

PATIENT
  Age: 39 Year
  Sex: Female

DRUGS (2)
  1. MAVENCLAD [Suspect]
     Active Substance: CLADRIBINE
     Indication: RELAPSING-REMITTING MULTIPLE SCLEROSIS
     Dosage: WEEK ONE THERAPY: TWO DOSAGE FORMS ON DAYS 1 TO 2 AND ONE DOSAGE FORM ON DAYS 3 TO 5.
     Route: 048
     Dates: start: 20191202
  2. MAVENCLAD [Suspect]
     Active Substance: CLADRIBINE
     Dosage: WEEK FIVE THERAPY: TWO DOSAGE FORMS ON DAYS 1 TO 2 AND ONE DOSAGE FORM ON DAYS 3 TO 5.
     Route: 048
     Dates: start: 20191230

REACTIONS (1)
  - Lymphocyte count decreased [Recovering/Resolving]
